FAERS Safety Report 13633743 (Version 1)
Quarter: 2017Q2

REPORT INFORMATION
  Report Type: Spontaneous
  Country: US (occurrence: US)
  Receive Date: 20170531
  Receipt Date: 20170531
  Transmission Date: 20170830
  Serious: No
  Sender: FDA-Public Use
  Company Number: US-ASTELLAS-1568866

PATIENT
  Sex: Female

DRUGS (14)
  1. CALCIUM PLUS (UNITED STATES) [Concomitant]
  2. FISH OIL [Concomitant]
     Active Substance: FISH OIL
  3. TARCEVA [Suspect]
     Active Substance: ERLOTINIB HYDROCHLORIDE
     Indication: LUNG NEOPLASM MALIGNANT
     Route: 048
     Dates: start: 20150103
  4. POTASSIUM CHLORIDE. [Concomitant]
     Active Substance: POTASSIUM CHLORIDE
  5. FLAXSEED [Concomitant]
     Active Substance: FLAX SEED
  6. LIPITOR [Concomitant]
     Active Substance: ATORVASTATIN CALCIUM
  7. XARELTO [Concomitant]
     Active Substance: RIVAROXABAN
  8. ATENOLOL. [Concomitant]
     Active Substance: ATENOLOL
  9. COUMADIN [Concomitant]
     Active Substance: WARFARIN SODIUM
  10. VITAMIN D3 [Concomitant]
     Active Substance: CHOLECALCIFEROL
  11. ASPIRIN EC [Concomitant]
     Active Substance: ASPIRIN
  12. HYDROCHLOROTHIAZIDE. [Concomitant]
     Active Substance: HYDROCHLOROTHIAZIDE
  13. LISINOPRIL. [Concomitant]
     Active Substance: LISINOPRIL
  14. CRANBERRY. [Concomitant]
     Active Substance: CRANBERRY
     Route: 065

REACTIONS (3)
  - Alopecia [Unknown]
  - Hypotrichosis [Unknown]
  - Nausea [Unknown]
